FAERS Safety Report 4457289-2 (Version None)
Quarter: 2004Q3

REPORT INFORMATION
  Report Type: 
  Country: None (occurrence: None)
  Receive Date: 20040922
  Receipt Date: 20040909
  Transmission Date: 20050211
  Serious: Yes (Hospitalization, Other)
  Sender: FDA-Public Use
  Company Number: 2004066328

PATIENT
  Age: 31 Year
  Sex: Female

DRUGS (3)
  1. SERTRALINE HYDROCHLORIDE [Suspect]
     Indication: ILL-DEFINED DISORDER
     Dosage: 50 MG (1 IN 1 D)
  2. TRIMETHOPRIM [Concomitant]
  3. SULFAMETHOXAZOLE [Concomitant]

REACTIONS (3)
  - HALLUCINATION, AUDITORY [None]
  - PHYSICAL ASSAULT [None]
  - URINARY TRACT INFECTION [None]
